FAERS Safety Report 4533364-9 (Version None)
Quarter: 2004Q4

REPORT INFORMATION
  Report Type: 
  Country: None (occurrence: None)
  Receive Date: 20041220
  Receipt Date: 20041220
  Transmission Date: 20050328
  Serious: Yes (Life-Threatening, Hospitalization)
  Sender: FDA-Public Use
  Company Number: None

PATIENT
  Age: 55 Year
  Sex: Male
  Weight: 157.2 kg

DRUGS (8)
  1. ETODOLAC [Suspect]
     Indication: PAIN
     Dosage: 200 MG PO BID
     Route: 048
     Dates: start: 20040501, end: 20041001
  2. METFORMIN HCL [Concomitant]
  3. LISINOPRIL [Concomitant]
  4. DIPHENHYDRAMINE HCL [Concomitant]
  5. SIMVASTATIN [Concomitant]
  6. CLONAZEPAM [Concomitant]
  7. ASPRIN [Concomitant]
  8. INDOMETHACIN [Concomitant]

REACTIONS (1)
  - GASTROINTESTINAL HAEMORRHAGE [None]
